FAERS Safety Report 7913484-9 (Version None)
Quarter: 2011Q4

REPORT INFORMATION
  Report Type: 
  Country: None (occurrence: None)
  Receive Date: 20111110
  Receipt Date: 20111027
  Transmission Date: 20120403
  Serious: Yes (Other)
  Sender: FDA-Public Use
  Company Number: 2011AP002517

PATIENT
  Age: 39 Year
  Sex: Female

DRUGS (3)
  1. NAPROXEN [Concomitant]
  2. CYCLEN (CILEST) [Concomitant]
  3. TERBINAFINE HYDROCHLORIDE [Suspect]
     Indication: NAIL INFECTION
     Dosage: 1 TAB;QD; PO
     Route: 048
     Dates: start: 20110322

REACTIONS (1)
  - VISUAL ACUITY REDUCED [None]
